FAERS Safety Report 14609912 (Version 4)
Quarter: 2018Q2

REPORT INFORMATION
  Report Type: Report from Study
  Country: BE (occurrence: BE)
  Receive Date: 20180307
  Receipt Date: 20180521
  Transmission Date: 20180711
  Serious: Yes (Other)
  Sender: FDA-Public Use
  Company Number: BE-PFIZER INC-2018090610

PATIENT
  Age: 72 Year
  Sex: Male
  Weight: 80.7 kg

DRUGS (11)
  1. OXALIPLATIN. [Concomitant]
     Active Substance: OXALIPLATIN
     Indication: COLORECTAL CANCER METASTATIC
     Dosage: UNK UNK, CYCLIC, EVERY 2 WEEKS
     Route: 042
     Dates: start: 20140618, end: 20160705
  2. AVASTIN [Suspect]
     Active Substance: BEVACIZUMAB
     Dosage: UNK UNK, CYCLIC, EVERY 2 WEEKS
     Route: 042
     Dates: start: 20160719, end: 20160830
  3. LITICAN /00690801/ [Concomitant]
     Active Substance: ALIZAPRIDE
     Indication: NAUSEA
     Dosage: UNK
     Dates: start: 20150719
  4. FLUOROURACIL. [Suspect]
     Active Substance: FLUOROURACIL
     Indication: COLORECTAL CANCER METASTATIC
     Dosage: UNK, CYCLIC, EVERY 2 WEEKS
     Route: 042
     Dates: start: 20140618, end: 20160705
  5. FLUOROURACIL. [Suspect]
     Active Substance: FLUOROURACIL
     Dosage: UNK UNK, CYCLIC, EVERY 2 WEEKS
     Route: 042
     Dates: start: 20160719
  6. FOLINIC ACID [Suspect]
     Active Substance: LEUCOVORIN
     Dosage: UNK UNK, CYCLIC, EVERY 2 WEEKS
     Route: 042
     Dates: start: 20160719
  7. AVASTIN [Suspect]
     Active Substance: BEVACIZUMAB
     Indication: COLORECTAL CANCER METASTATIC
     Dosage: UNK UNK, CYCLIC, EVERY 2 WEEKS
     Route: 042
     Dates: start: 20140604, end: 20160705
  8. IRINOTECAN HCL [Suspect]
     Active Substance: IRINOTECAN HYDROCHLORIDE
     Indication: COLORECTAL CANCER METASTATIC
     Dosage: UNK UNK, CYCLIC, EVERY 2 WEEKS
     Route: 042
     Dates: start: 20160719
  9. FOLINIC ACID [Suspect]
     Active Substance: LEUCOVORIN
     Indication: COLORECTAL CANCER METASTATIC
     Dosage: UNK, CYCLIC, EVERY 2 WEEKS
     Route: 042
     Dates: start: 20140618, end: 20160705
  10. NOBIRETIC [Concomitant]
     Dosage: UNK
     Dates: start: 20151201
  11. INNOHEP [Concomitant]
     Active Substance: TINZAPARIN SODIUM
     Dosage: UNK
     Dates: start: 20160322, end: 20160913

REACTIONS (8)
  - Nausea [Not Recovered/Not Resolved]
  - Dry mouth [Not Recovered/Not Resolved]
  - Pulmonary artery thrombosis [Not Recovered/Not Resolved]
  - Urticaria [Recovered/Resolved]
  - Stomatitis [Not Recovered/Not Resolved]
  - Hyperglycaemia [Not Recovered/Not Resolved]
  - Diarrhoea [Recovered/Resolved]
  - Alopecia [Not Recovered/Not Resolved]

NARRATIVE: CASE EVENT DATE: 20160719
